FAERS Safety Report 25334763 (Version 5)
Quarter: 2025Q2

REPORT INFORMATION
  Report Type: Spontaneous
  Country: US (occurrence: US)
  Receive Date: 20250520
  Receipt Date: 20250613
  Transmission Date: 20250716
  Serious: No
  Sender: BIOGEN
  Company Number: US-BIOGEN-2025BI01310974

PATIENT
  Age: 41 Year
  Sex: Male

DRUGS (2)
  1. VUMERITY [Suspect]
     Active Substance: DIROXIMEL FUMARATE
     Indication: Multiple sclerosis
     Route: 050
     Dates: start: 20250510
  2. VUMERITY [Suspect]
     Active Substance: DIROXIMEL FUMARATE
     Dosage: TAKE 2 CAPSULES (462MG) BY MOUTH TWICE DAILY
     Route: 050
     Dates: start: 202505

REACTIONS (12)
  - Fatigue [Unknown]
  - Somnolence [Unknown]
  - Pain [Unknown]
  - Skin burning sensation [Unknown]
  - Paraesthesia [Unknown]
  - Rash papular [Unknown]
  - Hypoaesthesia [Unknown]
  - Motion sickness [Recovered/Resolved]
  - Nausea [Unknown]
  - Diarrhoea [Unknown]
  - Pruritus [Unknown]
  - Hot flush [Recovered/Resolved]

NARRATIVE: CASE EVENT DATE: 20250501
